FAERS Safety Report 21854646 (Version 1)
Quarter: 2023Q1

REPORT INFORMATION
  Report Type: Spontaneous
  Country: US (occurrence: US)
  Receive Date: 20230112
  Receipt Date: 20230112
  Transmission Date: 20230418
  Serious: No
  Sender: FDA-Public Use
  Company Number: US-PERRIGO-21US032350

PATIENT
  Age: 60 Year
  Sex: Female
  Weight: 81.633 kg

DRUGS (1)
  1. IBUPROFEN [Suspect]
     Active Substance: IBUPROFEN
     Indication: Pain
     Dosage: 200 MG, BID, QOD
     Route: 048
     Dates: start: 2021

REACTIONS (1)
  - Exposure to unspecified agent [Not Recovered/Not Resolved]

NARRATIVE: CASE EVENT DATE: 20211001
